FAERS Safety Report 5448497-2 (Version None)
Quarter: 2007Q3

REPORT INFORMATION
  Report Type: 
  Country: None (occurrence: None)
  Receive Date: 20070911
  Receipt Date: 20070829
  Transmission Date: 20080115
  Serious: Yes (Hospitalization)
  Sender: FDA-Public Use
  Company Number: US-ELI_LILLY_AND_COMPANY-US200708006485

PATIENT
  Age: 82 Year
  Sex: Female

DRUGS (5)
  1. FORTEO [Suspect]
     Indication: OSTEOPOROSIS
     Dates: start: 20070710, end: 20070701
  2. FORTEO [Suspect]
     Dates: start: 20070819
  3. TOPROL-XL [Concomitant]
     Indication: HYPERTENSION
  4. BENICAR [Concomitant]
     Indication: HYPERTENSION
  5. HYDROCHLOROTHIAZIDE [Concomitant]
     Indication: HYPERTENSION

REACTIONS (5)
  - ANOREXIA [None]
  - GASTROINTESTINAL HYPERMOTILITY [None]
  - HYPONATRAEMIA [None]
  - MUSCLE SPASMS [None]
  - NAUSEA [None]
